FAERS Safety Report 20743989 (Version 2)
Quarter: 2022Q2

REPORT INFORMATION
  Report Type: Report from Study
  Country: TR (occurrence: TR)
  Receive Date: 20220425
  Receipt Date: 20220526
  Transmission Date: 20220721
  Serious: Yes (Other)
  Sender: FDA-Public Use
  Company Number: TR-SUN PHARMACEUTICAL INDUSTRIES LTD-2022R1-333920

PATIENT
  Age: 8 Year
  Sex: Male

DRUGS (3)
  1. CARBOPLATIN [Suspect]
     Active Substance: CARBOPLATIN
     Indication: Pinealoblastoma
     Dosage: 560 MILLIGRAM/SQ. METER, DAILY
     Route: 065
  2. VINCRISTINE [Suspect]
     Active Substance: VINCRISTINE
     Indication: Pinealoblastoma
     Dosage: 1.5 MILLIGRAM/SQ. METER,1ST DAY,8 CYCLES
     Route: 065
  3. ETOPOSIDE [Suspect]
     Active Substance: ETOPOSIDE
     Indication: Pinealoblastoma
     Dosage: 100 MILLIGRAM/SQ. METER, DAILY
     Route: 065

REACTIONS (2)
  - Disease progression [Unknown]
  - Myelosuppression [Unknown]
